FAERS Safety Report 8217759-8 (Version None)
Quarter: 2012Q1

REPORT INFORMATION
  Report Type: 
  Country: None (occurrence: None)
  Receive Date: 20120319
  Receipt Date: 20120307
  Transmission Date: 20120608
  Serious: No
  Sender: FDA-Public Use
  Company Number: US-JNJFOC-20120305038

PATIENT
  Sex: Female
  Weight: 76.2 kg

DRUGS (2)
  1. FENTANYL-100 [Suspect]
     Indication: FIBROMYALGIA
     Route: 062
     Dates: start: 20110101, end: 20110101
  2. FENTANYL-100 [Suspect]
     Route: 062
     Dates: start: 20110101

REACTIONS (4)
  - WRONG TECHNIQUE IN DRUG USAGE PROCESS [None]
  - HOT FLUSH [None]
  - HYPERHIDROSIS [None]
  - THERAPEUTIC RESPONSE DECREASED [None]
